FAERS Safety Report 17106837 (Version 1)
Quarter: 2019Q4

REPORT INFORMATION
  Report Type: Spontaneous
  Country: FR (occurrence: FR)
  Receive Date: 20191203
  Receipt Date: 20191203
  Transmission Date: 20200122
  Serious: Yes (Other)
  Sender: FDA-Public Use
  Company Number: FR-MYLANLABS-2019M1116456

PATIENT
  Age: 43 Year
  Sex: Female

DRUGS (4)
  1. ADIAZINE [Suspect]
     Active Substance: SULFADIAZINE
     Indication: CEREBRAL TOXOPLASMOSIS
     Dosage: 6 DOSAGE FORM, QD
     Route: 048
     Dates: start: 20190508, end: 20190605
  2. LEVETIRACETAM MYLAN PHARMA 250 MG, COMPRIM? PELLICUL? [Suspect]
     Active Substance: LEVETIRACETAM
     Indication: CEREBRAL TOXOPLASMOSIS
     Dosage: 2 DOSAGE FORM, QD
     Route: 048
     Dates: start: 20190507
  3. VALGANCICLOVIR MYLAN [Suspect]
     Active Substance: VALGANCICLOVIR
     Indication: CYTOMEGALOVIRUS TEST POSITIVE
     Dosage: 2 DOSAGE FORM, QW
     Route: 048
     Dates: start: 20190507, end: 20190603
  4. MALOCIDE                           /00112501/ [Suspect]
     Active Substance: PYRIMETHAMINE
     Indication: CEREBRAL TOXOPLASMOSIS
     Dosage: 1 DOSAGE FORM, QD
     Route: 048
     Dates: start: 20190508

REACTIONS (1)
  - Neutropenia [Recovering/Resolving]

NARRATIVE: CASE EVENT DATE: 20190524
